FAERS Safety Report 12443417 (Version 1)
Quarter: 2016Q2

REPORT INFORMATION
  Report Type: Spontaneous
  Country: US (occurrence: US)
  Receive Date: 20160607
  Receipt Date: 20160607
  Transmission Date: 20160815
  Serious: Yes (Hospitalization, Other)
  Sender: FDA-Public Use
  Company Number: US-SCIEGEN PHARMACEUTICALS INC-2016SCILIT00155

PATIENT
  Age: 16 Year
  Sex: Female

DRUGS (1)
  1. BUPROPION HYDROCHLORIDE. [Suspect]
     Active Substance: BUPROPION HYDROCHLORIDE
     Indication: PRODUCT USED FOR UNKNOWN INDICATION
     Dosage: 60 TABS OF 150 MG
     Route: 065

REACTIONS (11)
  - Overdose [None]
  - Status epilepticus [Recovered/Resolved]
  - Mydriasis [Unknown]
  - Cardiomyopathy acute [Unknown]
  - Ischaemia [Unknown]
  - Rhabdomyolysis [Unknown]
  - Muscular weakness [Unknown]
  - Pulseless electrical activity [Unknown]
  - Generalised tonic-clonic seizure [Recovered/Resolved]
  - Cardiogenic shock [Unknown]
  - Compartment syndrome [Unknown]
